FAERS Safety Report 7950283-6 (Version None)
Quarter: 2011Q4

REPORT INFORMATION
  Report Type: 
  Country: None (occurrence: None)
  Receive Date: 20111130
  Receipt Date: 20111117
  Transmission Date: 20120403
  Serious: Yes (Other)
  Sender: FDA-Public Use
  Company Number: US-JNJFOC-20111108487

PATIENT
  Sex: Female

DRUGS (4)
  1. MONISTAT [Suspect]
     Route: 061
  2. MONISTAT [Suspect]
     Route: 067
  3. MONISTAT [Suspect]
     Route: 061
  4. MONISTAT [Suspect]
     Indication: FUNGAL INFECTION
     Route: 067

REACTIONS (3)
  - VAGINAL MUCOSAL BLISTERING [None]
  - VULVOVAGINAL PAIN [None]
  - VAGINAL ULCERATION [None]
